FAERS Safety Report 18673993 (Version 1)
Quarter: 2020Q4

REPORT INFORMATION
  Report Type: Spontaneous
  Country: US (occurrence: US)
  Receive Date: 20201228
  Receipt Date: 20201228
  Transmission Date: 20210114
  Serious: Yes (Other)
  Sender: FDA-Public Use
  Company Number: US-PAIPHARMA-2020-US-012349

PATIENT
  Age: 18 Year
  Sex: Female
  Weight: 49.9 kg

DRUGS (10)
  1. XYZAL [Concomitant]
     Active Substance: LEVOCETIRIZINE DIHYDROCHLORIDE
  2. DEPO-PROVERA [Concomitant]
     Active Substance: MEDROXYPROGESTERONE ACETATE
  3. POLY-VI-SOL (LIQUID MULTIVITAMIN) [Concomitant]
  4. LEVOCETIRIZINE [Concomitant]
     Active Substance: LEVOCETIRIZINE
  5. SELENIUM [Concomitant]
     Active Substance: SELENIUM
  6. LANSOPRAZOLE. [Concomitant]
     Active Substance: LANSOPRAZOLE
  7. PULMICORT TURBUHALER [Concomitant]
     Active Substance: BUDESONIDE
  8. VALPROIC ACID ORAL SOLUTION USP, AF [Suspect]
     Active Substance: VALPROIC ACID
     Indication: SEIZURE
     Dosage: 15ML IN THE MORNING/20ML IN THE EVENING VIA G-TUBE
     Route: 050
     Dates: start: 2013
  9. ZINC. [Concomitant]
     Active Substance: ZINC
  10. FLONASE [Concomitant]
     Active Substance: FLUTICASONE PROPIONATE

REACTIONS (3)
  - Seizure [Unknown]
  - Nervousness [Recovered/Resolved]
  - Drug ineffective [Recovered/Resolved]

NARRATIVE: CASE EVENT DATE: 20200611
